FAERS Safety Report 18386437 (Version 1)
Quarter: 2020Q4

REPORT INFORMATION
  Report Type: Spontaneous
  Country: US (occurrence: US)
  Receive Date: 20201014
  Receipt Date: 20201014
  Transmission Date: 20210114
  Serious: Yes (Disabling)
  Sender: FDA-Public Use
  Company Number: None

PATIENT
  Age: 9 Year
  Sex: Male

DRUGS (2)
  1. MONTELUKAST [Suspect]
     Active Substance: MONTELUKAST SODIUM
     Indication: ASTHMA
  2. MONTELUKAST [Suspect]
     Active Substance: MONTELUKAST SODIUM
     Indication: HYPERSENSITIVITY

REACTIONS (12)
  - Anger [None]
  - Suicide threat [None]
  - Logorrhoea [None]
  - Depression [None]
  - Abnormal behaviour [None]
  - Psychomotor hyperactivity [None]
  - Disturbance in attention [None]
  - Crying [None]
  - Educational problem [None]
  - Apathy [None]
  - Mental disorder [None]
  - Emotional disorder [None]

NARRATIVE: CASE EVENT DATE: 20151001
